FAERS Safety Report 8615394-0 (Version None)
Quarter: 2012Q3

REPORT INFORMATION
  Report Type: 
  Country: None (occurrence: None)
  Receive Date: 20120823
  Receipt Date: 20120817
  Transmission Date: 20120928
  Serious: Yes (Hospitalization, Other)
  Sender: FDA-Public Use
  Company Number: FR-PFIZER INC-2012195431

PATIENT
  Age: 58 Year
  Sex: Female

DRUGS (11)
  1. ATORVASTATIN [Suspect]
     Dosage: 40 MG, 1X/DAY
     Route: 048
     Dates: end: 20120726
  2. COLCHICINE [Interacting]
     Indication: GOUT
     Dosage: 1 DF, 1X/DAY
     Route: 048
     Dates: start: 20120710, end: 20120724
  3. PAROXETINE HCL [Concomitant]
     Dosage: UNK
     Route: 048
  4. MYCOPHENOLATE MOFETIL (CELLCEPT) [Concomitant]
     Dosage: UNK
     Route: 048
  5. RENAGEL [Concomitant]
     Dosage: UNK
     Route: 048
  6. IRBESARTAN [Concomitant]
     Dosage: UNK
     Route: 048
  7. OMACOR [Concomitant]
     Dosage: UNK
     Route: 048
  8. METFORMINE MYLAN [Concomitant]
     Dosage: UNK
     Route: 048
  9. NEORAL [Concomitant]
     Dosage: UNK
     Route: 048
  10. LEVOTHYROXINE SODIUM [Concomitant]
     Dosage: UNK
     Route: 048
  11. NEBIVOLOL [Concomitant]
     Dosage: UNK
     Route: 048

REACTIONS (8)
  - DIARRHOEA [None]
  - GOUT [None]
  - FATIGUE [None]
  - DRUG INTERACTION [None]
  - BLOOD CREATINE PHOSPHOKINASE INCREASED [None]
  - DECREASED APPETITE [None]
  - RHABDOMYOLYSIS [None]
  - MUSCULAR WEAKNESS [None]
